FAERS Safety Report 5574638-2 (Version None)
Quarter: 2007Q4

REPORT INFORMATION
  Report Type: 
  Country: None (occurrence: None)
  Receive Date: 20071226
  Receipt Date: 20071226
  Transmission Date: 20080405
  Serious: No
  Sender: FDA-Public Use
  Company Number: None

PATIENT
  Age: 15 Year
  Sex: Female
  Weight: 83.9154 kg

DRUGS (1)
  1. HYOSCYAMINE 0.75 E ETHEX [Suspect]
     Indication: IRRITABLE BOWEL SYNDROME
     Dosage: 1 TABLET  1 X DAILEY  PO
     Route: 048
     Dates: start: 20071219, end: 20071221

REACTIONS (3)
  - ASTHENIA [None]
  - SOMNOLENCE [None]
  - TREMOR [None]
